FAERS Safety Report 13558451 (Version 1)
Quarter: 2017Q2

REPORT INFORMATION
  Report Type: Spontaneous
  Country: US (occurrence: US)
  Receive Date: 20170518
  Receipt Date: 20170518
  Transmission Date: 20170830
  Serious: Yes (Other)
  Sender: FDA-Public Use
  Company Number: None

PATIENT
  Age: 62 Year
  Sex: Female
  Weight: 62.1 kg

DRUGS (11)
  1. MELOXICAM, 15MG [Suspect]
     Active Substance: MELOXICAM
     Indication: OSTEOARTHRITIS
     Dosage: ?          QUANTITY:14 TABLET(S);?
     Route: 048
     Dates: start: 20170511, end: 20170517
  2. SELENIUM [Concomitant]
     Active Substance: SELENIUM
  3. KLONOPIN [Concomitant]
     Active Substance: CLONAZEPAM
  4. HAPPY COLON [Concomitant]
  5. BTT 2.0 [Concomitant]
  6. 5-HTP [Concomitant]
     Active Substance: OXITRIPTAN
  7. NORTRIPTYLINE [Concomitant]
     Active Substance: NORTRIPTYLINE
  8. MELATONIN [Concomitant]
     Active Substance: MELATONIN
  9. ARMOUR THYROID [Concomitant]
     Active Substance: THYROID, PORCINE
  10. NOVOLOG [Concomitant]
     Active Substance: INSULIN ASPART
  11. PROBIOTICS [Concomitant]
     Active Substance: PROBIOTICS NOS

REACTIONS (5)
  - Dysphagia [None]
  - Weight increased [None]
  - Oropharyngeal pain [None]
  - Dyspepsia [None]
  - Fluid retention [None]

NARRATIVE: CASE EVENT DATE: 20170511
